FAERS Safety Report 5937607-6 (Version None)
Quarter: 2008Q4

REPORT INFORMATION
  Report Type: 
  Country: None (occurrence: None)
  Receive Date: 20081031
  Receipt Date: 20081027
  Transmission Date: 20090506
  Serious: Yes (Other)
  Sender: FDA-Public Use
  Company Number: US-ELI_LILLY_AND_COMPANY-US200810006266

PATIENT
  Age: 69 Year
  Sex: Female

DRUGS (3)
  1. HUMALOG [Suspect]
     Indication: DIABETES MELLITUS
     Dosage: UNK, AS NEEDED
     Dates: start: 20030101
  2. HUMULIN N [Suspect]
     Dosage: 25 U, EACH MORNING
     Dates: start: 20030101
  3. HUMULIN N [Suspect]
     Dosage: 10 U, EACH EVENING
     Dates: start: 20030101

REACTIONS (7)
  - BLOOD PRESSURE DIASTOLIC DECREASED [None]
  - CORONARY ARTERY BYPASS [None]
  - DRUG HYPERSENSITIVITY [None]
  - GLYCOSYLATED HAEMOGLOBIN INCREASED [None]
  - HEADACHE [None]
  - HYPERHIDROSIS [None]
  - LOSS OF CONSCIOUSNESS [None]
